FAERS Safety Report 20825102 (Version 2)
Quarter: 2022Q3

REPORT INFORMATION
  Report Type: Report from Study
  Country: DO (occurrence: DO)
  Receive Date: 20220513
  Receipt Date: 20220725
  Transmission Date: 20221026
  Serious: Yes (Other)
  Sender: FDA-Public Use
  Company Number: DO-ABBVIE-22K-279-4393278-00

PATIENT
  Age: 20 Year
  Sex: Male
  Weight: 77.180 kg

DRUGS (2)
  1. HUMIRA [Suspect]
     Active Substance: ADALIMUMAB
     Indication: Crohn^s disease
     Route: 058
     Dates: start: 20180620, end: 20220629
  2. PREDNISONE [Concomitant]
     Active Substance: PREDNISONE
     Indication: Crohn^s disease
     Dosage: AS REQUIRED (IN CIRSIS)
     Route: 054

REACTIONS (5)
  - Haematochezia [Recovered/Resolved]
  - Haematochezia [Recovering/Resolving]
  - Unevaluable event [Recovering/Resolving]
  - Faecal calprotectin increased [Recovering/Resolving]
  - Anaemia [Recovering/Resolving]

NARRATIVE: CASE EVENT DATE: 20220201
